FAERS Safety Report 8423101-X (Version None)
Quarter: 2012Q2

REPORT INFORMATION
  Report Type: 
  Country: None (occurrence: None)
  Receive Date: 20120608
  Receipt Date: 20120528
  Transmission Date: 20120825
  Serious: Yes (Death, Other)
  Sender: FDA-Public Use
  Company Number: MY-CELGENEUS-101-50794-12022102

PATIENT
  Age: 57 Year
  Sex: Male

DRUGS (3)
  1. VIDAZA [Suspect]
     Dosage: 100 MILLIGRAM
     Route: 058
     Dates: start: 20110802, end: 20111201
  2. FLUDARABINE PHOSPHATE [Concomitant]
     Dosage: 42.5 MILLIGRAM
     Route: 041
     Dates: start: 20111229, end: 20120102
  3. CYTARABINE [Concomitant]
     Route: 041
     Dates: start: 20111229, end: 20120102

REACTIONS (2)
  - NEUTROPENIA [None]
  - NEUTROPENIC SEPSIS [None]
